FAERS Safety Report 6207385-4 (Version None)
Quarter: 2009Q2

REPORT INFORMATION
  Report Type: 
  Country: None (occurrence: None)
  Receive Date: 20090528
  Receipt Date: 20090516
  Transmission Date: 20091009
  Serious: Yes (Other)
  Sender: FDA-Public Use
  Company Number: US-PFIZER INC-2009197586

PATIENT
  Age: 37 Year
  Sex: Male

DRUGS (3)
  1. GEODON [Suspect]
     Indication: BIPOLAR DISORDER
     Dosage: 60 MG, UNK
     Dates: start: 20090301, end: 20090401
  2. ADDERALL XR 20 [Concomitant]
     Dosage: 30 MG, 1X/DAY
  3. ZOLOFT [Concomitant]

REACTIONS (3)
  - LOSS OF CONSCIOUSNESS [None]
  - PANIC ATTACK [None]
  - SEDATION [None]
